FAERS Safety Report 19666981 (Version 1)
Quarter: 2021Q3

REPORT INFORMATION
  Report Type: Spontaneous
  Country: US (occurrence: US)
  Receive Date: 20210806
  Receipt Date: 20210806
  Transmission Date: 20211014
  Serious: No
  Sender: FDA-Public Use
  Company Number: US-JNJFOC-20210752654

PATIENT
  Sex: Female

DRUGS (1)
  1. TYLENOL 8 HR ARTHRITIS PAIN [Suspect]
     Active Substance: ACETAMINOPHEN
     Indication: ARTHRITIS
     Dosage: PRODUCT START DATE: ABOUT A YEAR AGO
     Route: 065
     Dates: start: 2020

REACTIONS (2)
  - Inappropriate schedule of product administration [Unknown]
  - Blister [Unknown]

NARRATIVE: CASE EVENT DATE: 2020
